FAERS Safety Report 7019181-9 (Version None)
Quarter: 2010Q3

REPORT INFORMATION
  Report Type: 
  Country: None (occurrence: None)
  Receive Date: 20100928
  Receipt Date: 20100917
  Transmission Date: 20110219
  Serious: Yes (Hospitalization)
  Sender: FDA-Public Use
  Company Number: JP-AMGEN-QUU435172

PATIENT
  Sex: Female
  Weight: 42 kg

DRUGS (6)
  1. ENBREL [Suspect]
     Indication: RHEUMATOID ARTHRITIS
     Route: 058
     Dates: start: 20100209, end: 20100720
  2. RHEUMATREX [Suspect]
     Indication: RHEUMATOID ARTHRITIS
     Route: 048
     Dates: start: 20050426, end: 20080121
  3. RHEUMATREX [Suspect]
     Route: 048
     Dates: start: 20080122, end: 20090513
  4. RHEUMATREX [Suspect]
     Route: 048
     Dates: start: 20090514, end: 20100720
  5. FOLIAMIN [Concomitant]
     Indication: RHEUMATOID ARTHRITIS
     Route: 048
     Dates: start: 20090514, end: 20091028
  6. BENET [Concomitant]
     Indication: RHEUMATOID ARTHRITIS
     Route: 048
     Dates: start: 20100706, end: 20100714

REACTIONS (5)
  - ALPHA HAEMOLYTIC STREPTOCOCCAL INFECTION [None]
  - ARTHRALGIA [None]
  - CONDITION AGGRAVATED [None]
  - NEISSERIA INFECTION [None]
  - ORGANISING PNEUMONIA [None]
